FAERS Safety Report 16250084 (Version 3)
Quarter: 2021Q1

REPORT INFORMATION
  Report Type: Report from Study
  Country: JP (occurrence: JP)
  Receive Date: 20190429
  Receipt Date: 20210217
  Transmission Date: 20210419
  Serious: Yes (Death, Hospitalization, Other)
  Sender: FDA-Public Use
  Company Number: JP-009507513-1904JPN002523J

PATIENT
  Age: 62 Year
  Sex: Female
  Weight: 38 kg

DRUGS (15)
  1. LETERMOVIR [Suspect]
     Active Substance: LETERMOVIR
     Dosage: 480 MILLIGRAM, QD
     Route: 048
     Dates: start: 20190210, end: 20190502
  2. METHOTREXATE. [Concomitant]
     Active Substance: METHOTREXATE
     Dosage: 9 MILLIGRAM, QD
     Route: 051
     Dates: start: 20190126, end: 20190126
  3. PREVYMIS [Suspect]
     Active Substance: LETERMOVIR
     Indication: ANTIVIRAL PROPHYLAXIS
     Dosage: 480 MILLIGRAM, QD
     Route: 041
     Dates: start: 20190131, end: 20190209
  4. PROGRAF [Concomitant]
     Active Substance: TACROLIMUS
     Indication: PROPHYLAXIS
     Dosage: 1.8 MILLIGRAM, QD
     Route: 051
     Dates: end: 20190127
  5. PROGRAF [Concomitant]
     Active Substance: TACROLIMUS
     Dosage: 2.3 MILLIGRAM, QD
     Route: 051
     Dates: start: 20190208, end: 20190210
  6. VALACICLOVIR ACTAVIS [Concomitant]
     Active Substance: VALACYCLOVIR HYDROCHLORIDE
     Indication: PROPHYLAXIS
     Dosage: 500 MILLIGRAM, BID
     Route: 048
     Dates: end: 20190129
  7. LETERMOVIR [Suspect]
     Active Substance: LETERMOVIR
     Indication: ANTIVIRAL PROPHYLAXIS
     Dosage: 480 MILLIGRAM, QD
     Route: 048
     Dates: start: 20190125, end: 20190130
  8. PROGRAF [Concomitant]
     Active Substance: TACROLIMUS
     Dosage: 2.6 MILLIGRAM, QD
     Route: 051
     Dates: start: 20190201, end: 20190203
  9. PROGRAF [Concomitant]
     Active Substance: TACROLIMUS
     Dosage: 1.8 MILLIGRAM, QD
     Route: 051
     Dates: start: 20190204, end: 20190207
  10. ACICLOVIR [Concomitant]
     Active Substance: ACYCLOVIR
     Indication: PROPHYLAXIS
     Dosage: 250 MILLIGRAM, BID
     Route: 051
     Dates: start: 20190130, end: 20190209
  11. METHOTREXATE. [Concomitant]
     Active Substance: METHOTREXATE
     Indication: PROPHYLAXIS
     Dosage: 13 MILLIGRAM, QD
     Route: 051
     Dates: start: 20190124, end: 20190124
  12. PROGRAF [Concomitant]
     Active Substance: TACROLIMUS
     Dosage: 2.0 MILLIGRAM, QD
     Route: 051
     Dates: start: 20190128, end: 20190129
  13. PROGRAF [Concomitant]
     Active Substance: TACROLIMUS
     Dosage: 1.8 MILLIGRAM, QD
     Route: 051
     Dates: start: 20190211, end: 20190221
  14. PROGRAF [Concomitant]
     Active Substance: TACROLIMUS
     Dosage: 2.85 MILLIGRAM, QD
     Route: 051
     Dates: start: 20190130, end: 20190131
  15. METHOTREXATE. [Concomitant]
     Active Substance: METHOTREXATE
     Dosage: 9 MILLIGRAM, QD
     Route: 051
     Dates: start: 20190129, end: 20190129

REACTIONS (4)
  - Dysphagia [Recovered/Resolved]
  - Idiopathic interstitial pneumonia [Fatal]
  - Adverse event [Unknown]
  - Acute graft versus host disease in skin [Unknown]

NARRATIVE: CASE EVENT DATE: 2019
